FAERS Safety Report 6846886-2 (Version None)
Quarter: 2010Q3

REPORT INFORMATION
  Report Type: 
  Country: None (occurrence: None)
  Receive Date: 20100715
  Receipt Date: 20071027
  Transmission Date: 20110219
  Serious: No
  Sender: FDA-Public Use
  Company Number: US-PFIZER INC-2007079655

PATIENT
  Sex: Female
  Weight: 68.5 kg

DRUGS (3)
  1. CHANTIX [Suspect]
     Indication: SMOKING CESSATION THERAPY
     Route: 048
     Dates: start: 20070914
  2. ALBUTEROL [Concomitant]
  3. TYLENOL [Concomitant]

REACTIONS (3)
  - ERYTHEMA [None]
  - RASH [None]
  - RASH PAPULAR [None]
